FAERS Safety Report 7028836-1 (Version None)
Quarter: 2010Q4

REPORT INFORMATION
  Report Type: 
  Country: None (occurrence: None)
  Receive Date: 20101004
  Receipt Date: 20101004
  Transmission Date: 20110411
  Serious: No
  Sender: FDA-Public Use
  Company Number: None

PATIENT
  Age: 38 Year
  Sex: Female
  Weight: 90.7194 kg

DRUGS (2)
  1. OXYCONTIN [Suspect]
     Indication: SPINAL COLUMN STENOSIS
     Dosage: ONCE DAILY AT NIGHT PO
     Route: 048
     Dates: start: 20100801, end: 20101001
  2. OXYCONTIN [Suspect]
     Indication: SPINAL COLUMN STENOSIS
     Dosage: ONCE DAILY IN MORNING PO
     Route: 048
     Dates: start: 20100801, end: 20101001

REACTIONS (4)
  - ABDOMINAL DISCOMFORT [None]
  - DRUG EFFECT DECREASED [None]
  - FLATULENCE [None]
  - PRODUCT FORMULATION ISSUE [None]
